FAERS Safety Report 4973306-5 (Version None)
Quarter: 2006Q2

REPORT INFORMATION
  Report Type: 
  Country: None (occurrence: None)
  Receive Date: 20060414
  Receipt Date: 20050914
  Transmission Date: 20061013
  Serious: Yes (Hospitalization, Other)
  Sender: FDA-Public Use
  Company Number: CA-MERCK-0509CAN00092

PATIENT
  Age: 70 Year
  Sex: Female
  Weight: 57 kg

DRUGS (34)
  1. VIOXX [Suspect]
     Indication: ARTHRITIS
     Route: 048
     Dates: start: 20010604, end: 20041001
  2. ACETAMINOPHEN [Concomitant]
     Indication: PAIN
     Route: 065
  3. TOPIRAMATE [Concomitant]
     Route: 065
  4. MOCLOBEMIDE [Concomitant]
     Route: 065
  5. TRIAZOLAM [Concomitant]
     Route: 065
  6. LORAZEPAM [Concomitant]
     Route: 065
  7. MORPHINE SULFATE [Concomitant]
     Route: 065
  8. LEVOTHYROXINE SODIUM [Concomitant]
     Route: 065
  9. GABAPENTIN [Concomitant]
     Route: 065
  10. OXYBUTYNIN CHLORIDE [Concomitant]
     Route: 065
  11. SIBUTRAMINE HYDROCHLORIDE [Concomitant]
     Route: 065
  12. CYCLOBENZAPRINE HYDROCHLORIDE [Concomitant]
     Route: 065
  13. CELECOXIB [Concomitant]
     Route: 065
  14. TOLTERODINE TARTRATE [Concomitant]
     Route: 065
  15. LANSOPRAZOLE [Concomitant]
     Route: 065
  16. ESTRADIOL [Concomitant]
     Route: 065
  17. NITRAZEPAM [Concomitant]
     Route: 065
  18. GABAPENTIN [Concomitant]
     Route: 065
  19. LACTULOSE [Concomitant]
     Route: 065
  20. SIMVASTATIN [Concomitant]
     Route: 048
  21. PERGOLIDE MESYLATE [Concomitant]
     Route: 065
  22. MORPHINE [Concomitant]
     Route: 065
  23. ACETAMINOPHEN AND CODEINE PHOSPHATE [Concomitant]
     Route: 065
  24. ACETAMINOPHEN AND OXYCODONE HYDROCHLORIDE [Concomitant]
     Route: 065
  25. ATROPINE SULFATE AND DIPHENOXYLATE HYDROCHLORIDE [Concomitant]
     Route: 065
  26. CLONAZEPAM [Concomitant]
     Route: 065
  27. PRAMIPEXOLE DIHYDROCHLORIDE [Concomitant]
     Route: 065
  28. ASPIRIN AND CAFFEINE, CITRATED AND CODEINE PHOSPHATE [Concomitant]
     Route: 065
  29. INDAPAMIDE [Concomitant]
     Route: 065
  30. SENNA [Concomitant]
     Route: 065
  31. AMOXICILLIN AND CLAVULANATE POTASSIUM [Concomitant]
     Route: 065
  32. VALSARTAN [Concomitant]
     Route: 065
  33. BACLOFEN [Concomitant]
     Route: 065
  34. ROSUVASTATIN CALCIUM [Concomitant]
     Route: 065

REACTIONS (20)
  - ACUTE MYOCARDIAL INFARCTION [None]
  - ANAEMIA OF CHRONIC DISEASE [None]
  - BLOOD SODIUM DECREASED [None]
  - CARDIAC ENZYMES INCREASED [None]
  - CARDIAC FAILURE CONGESTIVE [None]
  - CEREBROVASCULAR ACCIDENT [None]
  - CHEST PAIN [None]
  - CORONARY ARTERY DISEASE [None]
  - DELIRIUM [None]
  - DRUG ABUSER [None]
  - ISCHAEMIC STROKE [None]
  - MYOCARDIAL INFARCTION [None]
  - OCCULT BLOOD POSITIVE [None]
  - OVERDOSE [None]
  - PANIC ATTACK [None]
  - PNEUMONIA [None]
  - RENAL FAILURE ACUTE [None]
  - ROTATOR CUFF SYNDROME [None]
  - STRESS [None]
  - TRANSIENT ISCHAEMIC ATTACK [None]
